FAERS Safety Report 19699709 (Version 1)
Quarter: 2021Q3

REPORT INFORMATION
  Report Type: Spontaneous
  Country: US (occurrence: US)
  Receive Date: 20210813
  Receipt Date: 20210813
  Transmission Date: 20211014
  Serious: Yes (Hospitalization, Other)
  Sender: FDA-Public Use
  Company Number: US-HORIZON THERAPEUTICS-HZN-2021-005542

PATIENT

DRUGS (1)
  1. TEPEZZA [Suspect]
     Active Substance: TEPROTUMUMAB-TRBW
     Indication: PRODUCT USED FOR UNKNOWN INDICATION
     Dosage: 4TH INFUSION
     Route: 065
     Dates: start: 20210708

REACTIONS (3)
  - Abdominal pain [Unknown]
  - Diverticulitis [Unknown]
  - Vomiting [Unknown]

NARRATIVE: CASE EVENT DATE: 20210727
